FAERS Safety Report 18706237 (Version 2)
Quarter: 2021Q1

REPORT INFORMATION
  Report Type: Spontaneous
  Country: IT (occurrence: IT)
  Receive Date: 20210106
  Receipt Date: 20210115
  Transmission Date: 20210419
  Serious: Yes (Hospitalization)
  Sender: FDA-Public Use
  Company Number: IT-ASTRAZENECA-2020SF75993

PATIENT
  Age: 91 Year
  Sex: Female

DRUGS (18)
  1. CARDIOASPIRIN [Concomitant]
     Active Substance: ASPIRIN
  2. URBASON [Concomitant]
     Active Substance: METHYLPREDNISOLONE
  3. TRITTICO [Concomitant]
     Active Substance: TRAZODONE HYDROCHLORIDE
  4. APIDRA [Concomitant]
     Active Substance: INSULIN GLULISINE
  5. SEROQUEL [Suspect]
     Active Substance: QUETIAPINE FUMARATE
     Indication: AGITATION
     Route: 048
     Dates: start: 20200101, end: 20201208
  6. SPIRIVA [Concomitant]
     Active Substance: TIOTROPIUM BROMIDE MONOHYDRATE
  7. MEDROL [Concomitant]
     Active Substance: METHYLPREDNISOLONE
  8. LASIX [Concomitant]
     Active Substance: FUROSEMIDE
  9. HALDOL [Suspect]
     Active Substance: HALOPERIDOL
     Indication: AGITATION
     Route: 065
     Dates: start: 20200101, end: 20201208
  10. ALIFLUS [Concomitant]
     Active Substance: FLUTICASONE PROPIONATE\SALMETEROL XINAFOATE
  11. LANTUS [Concomitant]
     Active Substance: INSULIN GLARGINE
  12. RANEXA [Concomitant]
     Active Substance: RANOLAZINE
  13. GARDENALE [Concomitant]
     Active Substance: PHENOBARBITAL
  14. OMEPRAZOLE. [Concomitant]
     Active Substance: OMEPRAZOLE
  15. MICARDIS [Concomitant]
     Active Substance: TELMISARTAN
  16. PARACETAMOL [Concomitant]
     Active Substance: ACETAMINOPHEN
  17. BISOPROLOL HEMIFUMARATE [Concomitant]
     Active Substance: BISOPROLOL FUMARATE
  18. MOVICOL [Concomitant]
     Active Substance: POLYETHYLENE GLYCOL 3350\POTASSIUM CHLORIDE\SODIUM BICARBONATE\SODIUM CHLORIDE

REACTIONS (1)
  - Sopor [Recovering/Resolving]

NARRATIVE: CASE EVENT DATE: 20201208
